FAERS Safety Report 21149369 (Version 2)
Quarter: 2023Q1

REPORT INFORMATION
  Report Type: Spontaneous
  Country: US (occurrence: US)
  Receive Date: 20220729
  Receipt Date: 20230123
  Transmission Date: 20230417
  Serious: No
  Sender: FDA-Public Use
  Company Number: US-NOVOPROD-925801

PATIENT
  Age: 67 Year
  Sex: Female

DRUGS (2)
  1. OZEMPIC [Suspect]
     Active Substance: SEMAGLUTIDE
     Indication: Type 2 diabetes mellitus
     Dosage: 1 MG, QW
     Route: 058
     Dates: start: 20220113, end: 20220602
  2. NovoFine 32G 6 mm [Concomitant]
     Indication: Type 2 diabetes mellitus
     Route: 058

REACTIONS (5)
  - Injection site vesicles [Recovered/Resolved]
  - Injection site discharge [Unknown]
  - Injection site pain [Unknown]
  - Needle issue [Not Recovered/Not Resolved]
  - Device delivery system issue [Not Recovered/Not Resolved]

NARRATIVE: CASE EVENT DATE: 20220222
